FAERS Safety Report 12620270 (Version 1)
Quarter: 2016Q3

REPORT INFORMATION
  Report Type: Spontaneous
  Country: IT (occurrence: IT)
  Receive Date: 20160803
  Receipt Date: 20160803
  Transmission Date: 20161109
  Serious: Yes (Other)
  Sender: FDA-Public Use
  Company Number: IT-TEVA-680369ACC

PATIENT
  Age: 62 Year
  Sex: Female
  Weight: 60 kg

DRUGS (12)
  1. RANIDIL - 50 MG/5 ML SOLUZIONE INIETTABILE PER USO ENDOVENOSO [Concomitant]
     Active Substance: RANITIDINE HYDROCHLORIDE
     Indication: PREMEDICATION
     Dosage: 50 MG
     Route: 042
     Dates: start: 20160527, end: 20160527
  2. CYMBALTA [Concomitant]
     Active Substance: DULOXETINE HYDROCHLORIDE
     Indication: DEPRESSION
     Dosage: 30 MG
     Route: 048
  3. OXALIPLATINO ACCORD - 5 MG/ML CONCENTRATO PER SOLUZIONE PER INFUSIONE [Suspect]
     Active Substance: OXALIPLATIN
     Indication: COLON CANCER
     Dosage: 135.2 MG CYCLICAL
     Route: 042
     Dates: start: 20160527, end: 20160527
  4. FLUOROURACILE AHCL - ACCORD HEALTHCARE LIMITED [Suspect]
     Active Substance: FLUOROURACIL
     Indication: COLON CANCER
     Dosage: 636 MG CYCLICAL
     Route: 040
     Dates: start: 20160527, end: 20160527
  5. GRANISETRON KABI - 1MG/ML CONCENTRATO PER SOLUZIONE INIETTABILE/INFUSI [Concomitant]
     Active Substance: GRANISETRON
     Indication: PREMEDICATION
     Dosage: 8 MG
     Route: 042
     Dates: start: 20160527, end: 20160527
  6. VECTIBIX [Suspect]
     Active Substance: PANITUMUMAB
     Indication: COLON CANCER
     Dosage: 336 MG CYCLICAL
     Route: 042
     Dates: start: 20160527, end: 20160527
  7. CALCIO LEVOFOLINATO TEVA - 100 MG POLVERE PER SOLUZIONE PER INFUSIONE [Suspect]
     Active Substance: LEVOLEUCOVORIN CALCIUM
     Indication: COLON CANCER
     Dosage: 318 MG CYCLICAL
     Route: 042
     Dates: start: 20160527, end: 20160527
  8. FLUOROURACILE AHCL - 50MG/ML SOLUZIONE INIETTABILE O INFUSIONE [Suspect]
     Active Substance: FLUOROURACIL
     Indication: COLON CANCER
     Dosage: 3816 G CYCLICAL
     Route: 041
     Dates: start: 20160527, end: 20160527
  9. TENORMIN - 100 MG COMPRESSE [Concomitant]
     Indication: HYPERTENSION
     Dosage: 100 MG
     Route: 048
  10. SOLDESAM - 8 MG/2 ML SOLUZIONE INIETTABILE [Concomitant]
     Active Substance: DEXAMETHASONE SODIUM PHOSPHATE
     Indication: PREMEDICATION
     Dosage: 8 MG
     Route: 042
     Dates: start: 20160527, end: 20160527
  11. NOVONORM - 0.5 MG COMPRESSE [Concomitant]
     Indication: DIABETES MELLITUS
     Dosage: .5 MG
     Route: 048
  12. REVOLADE - 50 MG COMPRESSA RIVESTITA CON FILM [Concomitant]
     Indication: THROMBOCYTOPENIA
     Dosage: 50 MG
     Route: 048

REACTIONS (2)
  - Chest pain [Recovering/Resolving]
  - Rash [Recovering/Resolving]

NARRATIVE: CASE EVENT DATE: 20160603
